FAERS Safety Report 9697373 (Version 7)
Quarter: 2014Q1

REPORT INFORMATION
  Report Type: Report from Study
  Country: CA (occurrence: CA)
  Receive Date: 20131120
  Receipt Date: 20140129
  Transmission Date: 20141002
  Serious: Yes (Other)
  Sender: FDA-Public Use
  Company Number: CA-ROCHE-1240681

PATIENT
  Age: 69 Year
  Sex: Female
  Weight: 95.3 kg

DRUGS (12)
  1. RITUXAN [Suspect]
     Indication: GRANULOMATOSIS WITH POLYANGIITIS
     Dosage: DAY 1, 15
     Route: 042
     Dates: start: 20130610
  2. MURO 128 [Concomitant]
  3. SALINE RINSE [Concomitant]
  4. PREDNISONE [Concomitant]
     Dosage: DAILY
     Route: 065
  5. COVERSYL PLUS (CANADA) [Concomitant]
     Dosage: DOSE REDUCED 8MG/2.5MG DAILY
     Route: 065
  6. PAXIL [Concomitant]
  7. BACTROBAN CREAM [Concomitant]
  8. ADVAIR [Concomitant]
  9. ATROVENT [Concomitant]
  10. DIPHENHYDRAMINE HCL [Concomitant]
     Route: 042
     Dates: start: 20130624
  11. ACETAMINOPHEN [Concomitant]
     Route: 048
     Dates: start: 20130624
  12. METHYLPREDNISOLONE [Concomitant]
     Route: 042
     Dates: start: 20130624

REACTIONS (19)
  - Infusion related reaction [Recovered/Resolved]
  - Hypertension [Unknown]
  - Functional gastrointestinal disorder [Not Recovered/Not Resolved]
  - Vasculitis [Unknown]
  - Polyp [Unknown]
  - Granulomatosis with polyangiitis [Unknown]
  - Eye infection [Unknown]
  - Nasal odour [Recovering/Resolving]
  - Sinus congestion [Not Recovered/Not Resolved]
  - Eye pain [Recovered/Resolved]
  - Cystitis [Unknown]
  - Weight increased [Unknown]
  - Sinusitis [Unknown]
  - Parosmia [Not Recovered/Not Resolved]
  - Granulomatosis with polyangiitis [Unknown]
  - Sinus headache [Unknown]
  - Granulomatosis with polyangiitis [Not Recovered/Not Resolved]
  - Bladder pain [Not Recovered/Not Resolved]
  - Cough [Unknown]
